FAERS Safety Report 4426351-2 (Version None)
Quarter: 2004Q3

REPORT INFORMATION
  Report Type: 
  Country: None (occurrence: None)
  Receive Date: 20040810
  Receipt Date: 20040726
  Transmission Date: 20050211
  Serious: Yes (Hospitalization)
  Sender: FDA-Public Use
  Company Number: A02200402328

PATIENT
  Age: 53 Year
  Sex: Female

DRUGS (6)
  1. EQUANIL [Suspect]
     Dosage: 1 UNIT OD; 1 MONTH - TIME TO ONSET
     Route: 048
     Dates: start: 20040324, end: 20040401
  2. STILNOX - (ZOLPIDEM) - TABLET - 10 MG [Suspect]
     Dosage: 10 MG OD; 1 MONTH - TIME TO ONSET
     Route: 048
     Dates: start: 20040324, end: 20040401
  3. PHOSPHALUGEL - (ALUMINIUM PHOSPHATE GEL) - UNKNOWN - UNIT DOSE : UNKNO [Suspect]
     Dosage: 1 UNIT TID; 1 MONTH - TIME TO ONSET
     Route: 048
     Dates: start: 20040324, end: 20040401
  4. ATHYMIL - (MIANSERIN HYDROCHLORIDE) - TABLET - UNIT DOSE : UNKNOWN [Suspect]
     Route: 048
     Dates: start: 20040324, end: 20040401
  5. MOPRAL - (OMEPRAZOLE) - CAPSULE - UNIT DOSE : UNKNOWN [Suspect]
     Dosage: 1 UNIT OD; 1 MONTH - TIME TO ONSET
     Dates: start: 20040324, end: 20040401
  6. NEURONTIN [Suspect]
     Dosage: 1 UNIT TID; 1 MONTH - TIME TO ONSET
     Route: 048
     Dates: start: 20040324, end: 20040401

REACTIONS (2)
  - AGRANULOCYTOSIS [None]
  - IATROGENIC INJURY [None]
